FAERS Safety Report 6305033-6 (Version None)
Quarter: 2009Q3

REPORT INFORMATION
  Report Type: 
  Country: None (occurrence: None)
  Receive Date: 20090811
  Receipt Date: 20090806
  Transmission Date: 20100115
  Serious: Yes (Hospitalization, Disabling)
  Sender: FDA-Public Use
  Company Number: US-GENENTECH-284146

PATIENT
  Sex: Female
  Weight: 71.655 kg

DRUGS (9)
  1. HERCEPTIN [Suspect]
     Indication: BREAST CANCER
     Dosage: 8 MG/KG, SINGLE
     Route: 042
     Dates: start: 20081229, end: 20081229
  2. HERCEPTIN [Suspect]
     Dosage: 6 MG/KG, Q3W
     Route: 042
     Dates: start: 20081229, end: 20090420
  3. CARBOPLATIN [Suspect]
     Indication: BREAST CANCER
     Dosage: UNK
  4. TAXOL [Concomitant]
     Indication: BREAST CANCER
     Dosage: UNK MG/M2, UNK
  5. CYCLOPHOSPHAMIDE [Concomitant]
     Indication: BREAST CANCER
     Dosage: 600 MG/M2, SINGLE
     Dates: start: 20081229, end: 20090209
  6. CYCLOPHOSPHAMIDE [Concomitant]
     Dosage: 600 MG/M2, SINGLE
     Dates: start: 20090119, end: 20090119
  7. CYCLOPHOSPHAMIDE [Concomitant]
     Dosage: 600 MG/M2, SINGLE
     Dates: start: 20090209, end: 20090209
  8. DOCETAXEL [Concomitant]
     Indication: BREAST CANCER
     Dosage: 75 MG/M2, UNK
     Dates: start: 20081229, end: 20090209
  9. RADIATION THERAPY [Concomitant]
     Indication: BREAST CANCER
     Dosage: UNK

REACTIONS (2)
  - CARDIOMYOPATHY [None]
  - DYSPNOEA [None]
